FAERS Safety Report 12509709 (Version 2)
Quarter: 2016Q3

REPORT INFORMATION
  Report Type: Report from Study
  Country: US (occurrence: US)
  Receive Date: 20160629
  Receipt Date: 20160809
  Transmission Date: 20161109
  Serious: Yes (Hospitalization)
  Sender: FDA-Public Use
  Company Number: US-CELGENEUS-USA-2016065119

PATIENT
  Age: 57 Year

DRUGS (8)
  1. REVLIMID [Suspect]
     Active Substance: LENALIDOMIDE
     Route: 048
     Dates: start: 20160330
  2. REVLIMID [Suspect]
     Active Substance: LENALIDOMIDE
     Route: 048
     Dates: start: 20150507, end: 20150603
  3. REVLIMID [Suspect]
     Active Substance: LENALIDOMIDE
     Dosage: 120 MILLIGRAM
     Route: 048
     Dates: start: 20150408, end: 20150413
  4. REVLIMID [Suspect]
     Active Substance: LENALIDOMIDE
     Route: 048
     Dates: start: 20160301, end: 20160321
  5. DENOSUMAB [Suspect]
     Active Substance: DENOSUMAB
     Indication: PLASMA CELL MYELOMA
     Route: 041
     Dates: start: 20150603, end: 20160221
  6. REVLIMID [Suspect]
     Active Substance: LENALIDOMIDE
     Indication: PLASMA CELL MYELOMA
     Route: 048
     Dates: start: 20150402, end: 20150406
  7. REVLIMID [Suspect]
     Active Substance: LENALIDOMIDE
     Route: 048
     Dates: start: 20150610, end: 20150730
  8. REVLIMID [Suspect]
     Active Substance: LENALIDOMIDE
     Route: 048
     Dates: start: 20150731, end: 20151014

REACTIONS (5)
  - Cardiac valve disease [Recovered/Resolved]
  - Bradycardia [Recovered/Resolved]
  - Mitral valve stenosis [Recovered/Resolved]
  - Mitral valve disease [Recovered/Resolved]
  - Pneumonia bacterial [Unknown]

NARRATIVE: CASE EVENT DATE: 20150413
